FAERS Safety Report 25452250 (Version 1)
Quarter: 2025Q2

REPORT INFORMATION
  Report Type: Spontaneous
  Country: US (occurrence: None)
  Receive Date: 20250618
  Receipt Date: 20250618
  Transmission Date: 20250717
  Serious: Yes (Hospitalization)
  Sender: FDA-CTU
  Company Number: None

PATIENT
  Age: 65 Year
  Sex: Female

DRUGS (6)
  1. DIMETHYL FUMARATE [Suspect]
     Active Substance: DIMETHYL FUMARATE
     Indication: Multiple sclerosis
     Dosage: TAKE 1 CAPSULE BY MOUTH TWICE DAILY
     Route: 048
     Dates: start: 20230218
  2. DULOXETINE CAP 30MG [Concomitant]
  3. GAMMAGARD S/D [Suspect]
     Active Substance: HUMAN IMMUNOGLOBULIN G
  4. LORTAB TAB 5-325MG [Concomitant]
  5. ONE DAILY TAB WOMENS [Concomitant]
  6. TYSABRI INJ 300/15ML [Concomitant]

REACTIONS (1)
  - Hospitalisation [None]

NARRATIVE: CASE EVENT DATE: 20250606
